FAERS Safety Report 6651073-7 (Version None)
Quarter: 2010Q1

REPORT INFORMATION
  Report Type: 
  Country: None (occurrence: None)
  Receive Date: 20100325
  Receipt Date: 20100315
  Transmission Date: 20100710
  Serious: Yes (Other)
  Sender: FDA-Public Use
  Company Number: AU-PFIZER INC-2010032510

PATIENT
  Age: 53 Year
  Sex: Female

DRUGS (3)
  1. ZOLOFT [Suspect]
     Dosage: UNK
  2. PRISTIQ [Suspect]
     Indication: DEPRESSION
     Dosage: 50 MG, 1X/DAY
     Dates: start: 20091101
  3. PROZAC [Suspect]
     Dosage: UNK

REACTIONS (3)
  - ARTHRALGIA [None]
  - ARTHRITIS [None]
  - DERMATITIS [None]
